FAERS Safety Report 18342133 (Version 1)
Quarter: 2020Q4

REPORT INFORMATION
  Report Type: Spontaneous
  Country: CA (occurrence: CA)
  Receive Date: 20201005
  Receipt Date: 20201005
  Transmission Date: 20210113
  Serious: Yes (Other)
  Sender: FDA-Public Use
  Company Number: CA-ROCHE-2688574

PATIENT
  Sex: Female

DRUGS (4)
  1. CELLCEPT [Suspect]
     Active Substance: MYCOPHENOLATE MOFETIL\MYCOPHENOLATE MOFETIL HYDROCHLORIDE
     Indication: NEUROMYELITIS OPTICA SPECTRUM DISORDER
     Route: 065
     Dates: start: 2017, end: 201902
  2. SOLIRIS [Concomitant]
     Active Substance: ECULIZUMAB
  3. RITUXAN [Suspect]
     Active Substance: RITUXIMAB
     Indication: NEUROMYELITIS OPTICA SPECTRUM DISORDER
     Route: 065
     Dates: start: 201902, end: 202003
  4. PREDNISONE. [Concomitant]
     Active Substance: PREDNISONE
     Dates: end: 201906

REACTIONS (4)
  - Thyroid disorder [Unknown]
  - Atrial fibrillation [Unknown]
  - Hypertension [Unknown]
  - Drug hypersensitivity [Unknown]
